FAERS Safety Report 5478708-9 (Version None)
Quarter: 2007Q4

REPORT INFORMATION
  Report Type: 
  Country: None (occurrence: None)
  Receive Date: 20071005
  Receipt Date: 20070928
  Transmission Date: 20080405
  Serious: Yes (Hospitalization)
  Sender: FDA-Public Use
  Company Number: TR-ROXANE LABORATORIES, INC-2007-DE-05223GD

PATIENT
  Age: 37 Year
  Sex: Female

DRUGS (5)
  1. SERTRALINE HCL [Suspect]
     Indication: BIPOLAR DISORDER
  2. CHLORPROMAZINE [Suspect]
     Indication: BIPOLAR DISORDER
  3. LITHIUM [Suspect]
     Indication: BIPOLAR DISORDER
  4. RISPERIDONE [Suspect]
     Indication: BIPOLAR DISORDER
  5. VALPROATE SODIUM [Suspect]
     Indication: BIPOLAR DISORDER

REACTIONS (1)
  - NEUROLEPTIC MALIGNANT SYNDROME [None]
